FAERS Safety Report 7085390-6 (Version None)
Quarter: 2010Q4

REPORT INFORMATION
  Report Type: 
  Country: None (occurrence: None)
  Receive Date: 20101105
  Receipt Date: 20101101
  Transmission Date: 20110411
  Serious: Yes (Other)
  Sender: FDA-Public Use
  Company Number: CN-PFIZER INC-2010138906

PATIENT

DRUGS (2)
  1. SOLU-MEDROL [Suspect]
     Indication: DRUG ERUPTION
     Dosage: UNK
  2. MEDROL [Suspect]
     Dosage: 32 MG, DAILY
     Route: 048

REACTIONS (1)
  - PSYCHIATRIC SYMPTOM [None]
